FAERS Safety Report 5235845-1 (Version None)
Quarter: 2007Q1

REPORT INFORMATION
  Report Type: 
  Country: None (occurrence: None)
  Receive Date: 20070212
  Receipt Date: 20070206
  Transmission Date: 20070707
  Serious: Yes (Hospitalization, Other)
  Sender: FDA-Public Use
  Company Number: US-JNJFOC-20070201494

PATIENT
  Age: 30 Year
  Sex: Male

DRUGS (7)
  1. DARUNAVIR [Suspect]
     Indication: HIV INFECTION
     Route: 048
  2. MK-0518 [Concomitant]
     Indication: HIV INFECTION
     Route: 048
  3. NORVIR [Concomitant]
     Indication: HIV INFECTION
     Route: 065
  4. DARAPRIM [Concomitant]
     Route: 065
  5. CLINDAMYCIN [Concomitant]
     Route: 065
  6. VIREAD [Concomitant]
     Indication: HIV INFECTION
     Route: 065
  7. ZIAGEN [Concomitant]
     Indication: HIV INFECTION
     Route: 065

REACTIONS (1)
  - PROGRESSIVE MULTIFOCAL LEUKOENCEPHALOPATHY [None]
